FAERS Safety Report 5125824-7 (Version None)
Quarter: 2006Q3

REPORT INFORMATION
  Report Type: 
  Country: None (occurrence: None)
  Receive Date: 20060818
  Receipt Date: 20060509
  Transmission Date: 20061208
  Serious: No
  Sender: FDA-Public Use
  Company Number: SGB1-2006-00254

PATIENT

DRUGS (1)
  1. FOSRENOL [Suspect]

REACTIONS (1)
  - RASH [None]
